FAERS Safety Report 5851303-5 (Version None)
Quarter: 2008Q3

REPORT INFORMATION
  Report Type: 
  Country: None (occurrence: None)
  Receive Date: 20080731
  Receipt Date: 20080410
  Transmission Date: 20090109
  Serious: No
  Sender: FDA-Public Use
  Company Number: 2006PV010250

PATIENT
  Age: 63 Year
  Sex: Male
  Weight: 104.3 kg

DRUGS (9)
  1. EXENATIDE(EXENATIDE) PEN,DISPOSABLE [Suspect]
     Indication: TYPE 2 DIABETES MELLITUS
     Dosage: 5 UG, 2/D, SUBCUTANEOUS, 5 UG, 2/D, SUBCUTANEOUS, 10 UG, 2/D, SUBCUTANEOUS, 5 UG, 2/D, SUBCUTANEOUS
     Route: 058
     Dates: start: 20050701, end: 20060701
  2. EXENATIDE(EXENATIDE) PEN,DISPOSABLE [Suspect]
     Indication: TYPE 2 DIABETES MELLITUS
     Dosage: 5 UG, 2/D, SUBCUTANEOUS, 5 UG, 2/D, SUBCUTANEOUS, 10 UG, 2/D, SUBCUTANEOUS, 5 UG, 2/D, SUBCUTANEOUS
     Route: 058
     Dates: start: 20060701, end: 20060901
  3. EXENATIDE(EXENATIDE) PEN,DISPOSABLE [Suspect]
     Indication: TYPE 2 DIABETES MELLITUS
     Dosage: 5 UG, 2/D, SUBCUTANEOUS, 5 UG, 2/D, SUBCUTANEOUS, 10 UG, 2/D, SUBCUTANEOUS, 5 UG, 2/D, SUBCUTANEOUS
     Route: 058
     Dates: start: 20051101
  4. EXENATIDE(EXENATIDE) PEN,DISPOSABLE [Suspect]
     Indication: TYPE 2 DIABETES MELLITUS
     Dosage: 5 UG, 2/D, SUBCUTANEOUS, 5 UG, 2/D, SUBCUTANEOUS, 10 UG, 2/D, SUBCUTANEOUS, 5 UG, 2/D, SUBCUTANEOUS
     Route: 058
     Dates: start: 20060901
  5. EXENATIDE PEN, DISPOSABLE DEVICE (EXENATIDE PEN) PEN,DISPOSABLE [Concomitant]
  6. AVANDAMET [Concomitant]
  7. AMARYL [Concomitant]
  8. LANTUS [Concomitant]
  9. METFORMIN HCL [Concomitant]

REACTIONS (4)
  - BLOOD GLUCOSE INCREASED [None]
  - FATIGUE [None]
  - NAUSEA [None]
  - VOMITING [None]
